FAERS Safety Report 8789647 (Version 1)
Quarter: 2012Q4

REPORT INFORMATION
  Report Type: Spontaneous
  Country: US (occurrence: None)
  Receive Date: 20120905
  Receipt Date: 20120905
  Transmission Date: 20130627
  Serious: Yes (Other)
  Sender: FDA-Public Use
  Company Number: AMAG201203083

PATIENT
  Age: 33 Year
  Sex: Female
  Weight: 93.9 kg

DRUGS (12)
  1. FERAHEME [Suspect]
     Indication: IRON DEFICIENCY ANEMIA
     Dosage: 2 ml, single, IV push
     Dates: start: 20120810, end: 20120810
  2. METOPROLOL (METOPROLOL TARTRATE) [Concomitant]
  3. WARFARIN (WARFARIN SODIUM) [Concomitant]
  4. PREDNISONE (PREDNISONE ACETATE) [Concomitant]
  5. CELLCEPT (MYCOPHENOLATE MOFETIL) TABLET [Concomitant]
  6. PROGRAF (TACROLIMUS) [Concomitant]
  7. PRAVASTATIN (PRAVASTATIN) [Concomitant]
  8. RANITIDINE (RANITIDINE HYDROCHLORIDE) [Concomitant]
  9. MULTIVITAMIN (VITAMINS NOS) [Concomitant]
  10. IBUPROFEN (IBUPROFEN) [Concomitant]
  11. ONDANSETRON (ONDANSETRON) [Concomitant]
  12. OXYCODONE / ACETAMINOPHEN (OXYCODONE HYDROCHLORIDE, PARACETAMOL) [Concomitant]

REACTIONS (11)
  - Hypersensitivity [None]
  - Dyspnoea [None]
  - Wheezing [None]
  - Pharyngeal oedema [None]
  - Flushing [None]
  - Chest discomfort [None]
  - Throat tightness [None]
  - Swollen tongue [None]
  - Feeling hot [None]
  - Rash generalised [None]
  - Lip swelling [None]
